FAERS Safety Report 10977868 (Version 1)
Quarter: 2015Q2

REPORT INFORMATION
  Report Type: Spontaneous
  Country: IL (occurrence: IL)
  Receive Date: 20150402
  Receipt Date: 20150402
  Transmission Date: 20150821
  Serious: Yes (Hospitalization)
  Sender: FDA-Public Use
  Company Number: IL-EISAI MEDICAL RESEARCH-EC-2015-005485

PATIENT
  Age: 14 Year
  Sex: Female

DRUGS (6)
  1. FYCOMPA [Suspect]
     Active Substance: PERAMPANEL
     Dosage: TITRATED DOWN AND DISCONTINUED
     Route: 048
     Dates: start: 201503, end: 201503
  2. CLOBAZAM [Concomitant]
     Active Substance: CLOBAZAM
  3. FYCOMPA [Suspect]
     Active Substance: PERAMPANEL
     Dosage: TITRATED UP TO
     Route: 048
     Dates: end: 201503
  4. FLUOXETINE [Concomitant]
     Active Substance: FLUOXETINE\FLUOXETINE HYDROCHLORIDE
  5. FYCOMPA [Suspect]
     Active Substance: PERAMPANEL
     Indication: PARTIAL SEIZURES
     Dosage: UNKNOWN
     Route: 048
  6. QUETIAPINE [Concomitant]
     Active Substance: QUETIAPINE

REACTIONS (7)
  - Anxiety [Recovering/Resolving]
  - Abnormal behaviour [Recovering/Resolving]
  - Anger [Recovering/Resolving]
  - Dissociation [Recovering/Resolving]
  - Suicide attempt [Recovering/Resolving]
  - Screaming [Recovering/Resolving]
  - Depression [Recovering/Resolving]

NARRATIVE: CASE EVENT DATE: 201503
